FAERS Safety Report 18749754 (Version 1)
Quarter: 2021Q1

REPORT INFORMATION
  Report Type: Spontaneous
  Country: TW (occurrence: TW)
  Receive Date: 20210117
  Receipt Date: 20210117
  Transmission Date: 20210419
  Serious: Yes (Hospitalization, Other)
  Sender: FDA-Public Use
  Company Number: TW-SA-2021SA008939

PATIENT
  Age: 66 Year
  Sex: Male

DRUGS (1)
  1. CLOPIDOGREL BISULFATE. [Suspect]
     Active Substance: CLOPIDOGREL BISULFATE
     Indication: ANTIPLATELET THERAPY
     Dosage: 75 MG, QD

REACTIONS (9)
  - Muscular weakness [Recovered/Resolved]
  - Anal sphincter atony [Recovered/Resolved]
  - Urinary incontinence [Recovered/Resolved]
  - Spinal cord compression [Recovered/Resolved]
  - Paraplegia [Recovered/Resolved]
  - Spinal epidural haematoma [Recovered/Resolved]
  - Neck pain [Recovered/Resolved]
  - Haematoma [Recovered/Resolved]
  - Hypoaesthesia [Recovered/Resolved]
